FAERS Safety Report 10051122 (Version 1)
Quarter: 2014Q2

REPORT INFORMATION
  Report Type: Spontaneous
  Country: US (occurrence: US)
  Receive Date: 20140401
  Receipt Date: 20140401
  Transmission Date: 20141212
  Serious: No
  Sender: FDA-Public Use
  Company Number: US-ASTRAZENECA-2013SE46840

PATIENT
  Age: 49 Year
  Sex: Female

DRUGS (3)
  1. NEXIUM [Suspect]
     Indication: GASTROOESOPHAGEAL REFLUX DISEASE
     Route: 048
     Dates: start: 201106
  2. OXYBUTININ [Concomitant]
     Indication: DIURETIC THERAPY
     Route: 048
  3. BACLOFEN [Concomitant]
     Dosage: QID
     Route: 048

REACTIONS (3)
  - Sensation of foreign body [Not Recovered/Not Resolved]
  - Cough [Unknown]
  - Intentional product misuse [Unknown]
